FAERS Safety Report 7060233-5 (Version None)
Quarter: 2010Q4

REPORT INFORMATION
  Report Type: 
  Country: None (occurrence: None)
  Receive Date: 20101025
  Receipt Date: 20101011
  Transmission Date: 20110411
  Serious: Yes (Other)
  Sender: FDA-Public Use
  Company Number: IN-MERCK-1010USA02045

PATIENT
  Age: 65 Year
  Sex: Male

DRUGS (2)
  1. HYDRODIURIL [Suspect]
     Route: 048
  2. LEVOTHYROXINE SODIUM [Concomitant]
     Indication: HYPOTHYROIDISM
     Route: 065

REACTIONS (2)
  - HYPOKALAEMIA [None]
  - PARALYSIS [None]
